FAERS Safety Report 14240521 (Version 1)
Quarter: 2017Q4

REPORT INFORMATION
  Report Type: Spontaneous
  Country: US (occurrence: US)
  Receive Date: 20171130
  Receipt Date: 20171130
  Transmission Date: 20180321
  Serious: Yes (Death)
  Sender: FDA-Public Use
  Company Number: US-BAYER-2017-226720

PATIENT
  Age: 79 Year
  Sex: Male

DRUGS (1)
  1. ALKA-SELTZER ORIGINAL [Suspect]
     Active Substance: ANHYDROUS CITRIC ACID\ASPIRIN\SODIUM BICARBONATE
     Dosage: 1 DF, HS DISSOLVED IN WATER
     Route: 048
     Dates: start: 1991, end: 1991

REACTIONS (2)
  - Aortic aneurysm [Fatal]
  - Underdose [Unknown]

NARRATIVE: CASE EVENT DATE: 1991
